FAERS Safety Report 11115502 (Version 1)
Quarter: 2015Q2

REPORT INFORMATION
  Report Type: Spontaneous
  Country: US (occurrence: None)
  Receive Date: 20150514
  Receipt Date: 20150514
  Transmission Date: 20150821
  Serious: Yes (Life-Threatening, Other)
  Sender: FDA-Public Use
  Company Number: None

PATIENT
  Age: 56 Year
  Sex: Male
  Weight: 109 kg

DRUGS (1)
  1. METHYLNALTREXONE [Suspect]
     Active Substance: METHYLNALTREXONE
     Indication: CONSTIPATION
     Route: 058
     Dates: start: 20150509, end: 20150509

REACTIONS (3)
  - Large intestine perforation [None]
  - Retroperitoneal infection [None]
  - Retroperitoneal haematoma [None]

NARRATIVE: CASE EVENT DATE: 20150510
